FAERS Safety Report 15152197 (Version 1)
Quarter: 2018Q3

REPORT INFORMATION
  Report Type: Spontaneous
  Country: CO (occurrence: CO)
  Receive Date: 20180717
  Receipt Date: 20180717
  Transmission Date: 20181010
  Serious: Yes (Hospitalization)
  Sender: FDA-Public Use
  Company Number: CO-ACTELION-A-CH2018-175363

PATIENT
  Age: 15 Year
  Sex: Female
  Weight: 67 kg

DRUGS (1)
  1. BOSENTAN. [Suspect]
     Active Substance: BOSENTAN
     Indication: PULMONARY ARTERIAL HYPERTENSION
     Dosage: 62.5 MG, BID
     Route: 048
     Dates: start: 20130101, end: 20160101

REACTIONS (2)
  - Jaw operation [Recovering/Resolving]
  - Jaw disorder [Unknown]

NARRATIVE: CASE EVENT DATE: 20180614
